FAERS Safety Report 9372631 (Version 1)
Quarter: 2013Q2

REPORT INFORMATION
  Report Type: Report from Study
  Country: US (occurrence: US)
  Receive Date: 20130627
  Receipt Date: 20130627
  Transmission Date: 20140414
  Serious: Yes (Hospitalization)
  Sender: FDA-Public Use
  Company Number: US-MYLANLABS-2013S1003395

PATIENT
  Age: 30 Year
  Sex: Female
  Weight: 55.79 kg

DRUGS (9)
  1. CLOZAPINE TABLETS [Suspect]
     Indication: SCHIZOAFFECTIVE DISORDER
     Route: 048
     Dates: start: 20130110, end: 20130321
  2. DIVALPROEX SODIUM [Concomitant]
     Route: 048
     Dates: start: 20120419, end: 20130421
  3. PROPRANOLOL [Concomitant]
     Route: 048
     Dates: start: 20130208
  4. TRAMADOL [Concomitant]
     Route: 048
     Dates: start: 20130208, end: 20130421
  5. DOCUSATE SODIUM [Concomitant]
     Dosage: 100MG/QAM - 200MG/HS
     Route: 048
     Dates: start: 20130215
  6. SIMETHICONE [Concomitant]
     Route: 048
     Dates: start: 20091116
  7. RANITIDINE [Concomitant]
     Route: 048
     Dates: start: 20110314
  8. METFORMIN [Concomitant]
     Route: 048
     Dates: start: 20100629
  9. SENNA CONCENTRATE [Concomitant]
     Dosage: 2 TABLETS
     Route: 048
     Dates: start: 20130311

REACTIONS (2)
  - Granulocytopenia [Not Recovered/Not Resolved]
  - Convulsion [Recovered/Resolved]
